FAERS Safety Report 5895764-4 (Version None)
Quarter: 2008Q3

REPORT INFORMATION
  Report Type: 
  Country: None (occurrence: None)
  Receive Date: 20080820
  Receipt Date: 20080506
  Transmission Date: 20090109
  Serious: No
  Sender: FDA-Public Use
  Company Number: 2008SP008506

PATIENT
  Age: 48 Year
  Sex: Male

DRUGS (1)
  1. NOXAFIL [Suspect]
     Indication: DRUG USE FOR UNKNOWN INDICATION
     Dosage: 400 MG;BID;PO
     Route: 048

REACTIONS (1)
  - NO THERAPEUTIC RESPONSE [None]
